FAERS Safety Report 24224548 (Version 4)
Quarter: 2024Q4

REPORT INFORMATION
  Report Type: Spontaneous
  Country: US (occurrence: US)
  Receive Date: 20240819
  Receipt Date: 20241029
  Transmission Date: 20250114
  Serious: No
  Sender: IPSEN BIOPHARMACEUTICALS, INC.
  Company Number: US-IPSEN Group, Research and Development-2024-15827

PATIENT
  Age: 32 Year
  Sex: Female
  Weight: 52.2 kg

DRUGS (6)
  1. SOHONOS [Suspect]
     Active Substance: PALOVAROTENE
     Indication: Fibrodysplasia ossificans progressiva
     Dosage: 10 MG ONCE DAILY (FOR WEEKS 5-12 OF FLARE UP)
     Route: 048
     Dates: start: 202312
  2. SOHONOS [Suspect]
     Active Substance: PALOVAROTENE
     Dosage: 5MG/DAY
     Route: 048
  3. SOHONOS [Suspect]
     Active Substance: PALOVAROTENE
     Dosage: 20MG/ DAY
     Route: 048
  4. MUPIROCIN [Concomitant]
     Active Substance: MUPIROCIN
     Dates: start: 20240730
  5. CELECOXIB [Concomitant]
     Active Substance: CELECOXIB
  6. HYDROCORTISONE [Concomitant]
     Active Substance: HYDROCORTISONE
     Dates: start: 20240730

REACTIONS (5)
  - Condition aggravated [Not Recovered/Not Resolved]
  - Skin exfoliation [Unknown]
  - Pruritus [Unknown]
  - Dry skin [Not Recovered/Not Resolved]
  - Paronychia [Not Recovered/Not Resolved]

NARRATIVE: CASE EVENT DATE: 20240730
